FAERS Safety Report 9586392 (Version 2)
Quarter: 2013Q4

REPORT INFORMATION
  Report Type: Spontaneous
  Country: CA (occurrence: CA)
  Receive Date: 20131003
  Receipt Date: 20131015
  Transmission Date: 20140711
  Serious: Yes (Other)
  Sender: FDA-Public Use
  Company Number: CA-JNJFOC-20131000591

PATIENT
  Age: 87 Year
  Sex: 0

DRUGS (10)
  1. XARELTO [Suspect]
     Indication: PRODUCT USED FOR UNKNOWN INDICATION
     Route: 048
     Dates: start: 20130908, end: 20130919
  2. CEFAZOLIN [Concomitant]
     Route: 042
     Dates: start: 20130908, end: 20130909
  3. DILAUDID [Concomitant]
     Route: 065
     Dates: start: 20130908
  4. FERROUS FUMARATE [Concomitant]
     Route: 065
     Dates: start: 20130908
  5. ATORVASTATIN [Concomitant]
     Route: 065
  6. B12 [Concomitant]
     Route: 065
  7. VITAMIN D NOS [Concomitant]
     Route: 065
  8. BISOPROLOL [Concomitant]
     Route: 065
  9. LEVOTHYROXINE [Concomitant]
     Route: 065
  10. PANTOPRAZOLE [Concomitant]
     Route: 065

REACTIONS (1)
  - Thrombocytopenia [Recovering/Resolving]
